APPROVED DRUG PRODUCT: LOXAPINE SUCCINATE
Active Ingredient: LOXAPINE SUCCINATE
Strength: EQ 25MG BASE
Dosage Form/Route: CAPSULE;ORAL
Application: A076762 | Product #003
Applicant: RISING PHARMA HOLDING INC
Approved: Nov 1, 2004 | RLD: No | RS: No | Type: DISCN